FAERS Safety Report 5196829-5 (Version None)
Quarter: 2006Q4

REPORT INFORMATION
  Report Type: 
  Country: None (occurrence: None)
  Receive Date: 20061227
  Receipt Date: 20061213
  Transmission Date: 20070319
  Serious: Yes (Other)
  Sender: FDA-Public Use
  Company Number: 2006154014

PATIENT
  Age: 49 Year
  Sex: Male
  Weight: 118.8424 kg

DRUGS (8)
  1. NEURONTIN [Suspect]
     Indication: NERVE INJURY
     Dosage: 3600 MG (3600 MG, 1 IN 1 D)
     Dates: start: 19980101
  2. CELEBREX [Concomitant]
  3. AMITRITPYLINE (AMITRIPTYLINE) [Concomitant]
  4. PRAVACHOL [Concomitant]
  5. NEXIUM [Concomitant]
  6. TOPROL-XL [Concomitant]
  7. LOTREL [Concomitant]
  8. HYDROCORTISONE [Concomitant]

REACTIONS (4)
  - INFECTIVE TENOSYNOVITIS [None]
  - ROTATOR CUFF REPAIR [None]
  - TENDON OPERATION [None]
  - VERTEBRAL INJURY [None]
